FAERS Safety Report 18600423 (Version 1)
Quarter: 2020Q4

REPORT INFORMATION
  Report Type: Spontaneous
  Country: CN (occurrence: CN)
  Receive Date: 20201210
  Receipt Date: 20201210
  Transmission Date: 20210114
  Serious: Yes (Other)
  Sender: FDA-Public Use
  Company Number: CN-PFIZER INC-2020481938

PATIENT
  Age: 36 Year
  Sex: Male
  Weight: 68 kg

DRUGS (1)
  1. CYTOSAR [Suspect]
     Active Substance: CYTARABINE
     Indication: SYMPTOMATIC TREATMENT
     Dosage: 1500 MG, 2X/DAY
     Route: 041
     Dates: start: 20201125

REACTIONS (2)
  - Rash [Recovering/Resolving]
  - Pruritus [Recovering/Resolving]

NARRATIVE: CASE EVENT DATE: 20201126
